FAERS Safety Report 7733947-9 (Version None)
Quarter: 2011Q3

REPORT INFORMATION
  Report Type: 
  Country: None (occurrence: None)
  Receive Date: 20110901
  Receipt Date: 20110818
  Transmission Date: 20111222
  Serious: Yes (Hospitalization, Disabling)
  Sender: FDA-Public Use
  Company Number: 2011MA009265

PATIENT
  Age: 46 Year
  Sex: Male

DRUGS (4)
  1. PREDNISONE [Suspect]
     Indication: URTICARIA
     Dosage: 48 MG;
     Dates: start: 20080601, end: 20100201
  2. METHYLPREDNISOLONE [Suspect]
     Indication: URTICARIA
     Dosage: 16 MG;TID;
     Dates: start: 20090601
  3. HYDROCORTISONE 1% OINTMENT [Suspect]
     Indication: URTICARIA
     Dosage: 192 MG;
     Dates: start: 20080601, end: 20100201
  4. ANAKINRA (ANAKINRA) [Concomitant]
     Indication: URTICARIA
     Dosage: 1 VIAL;3X;SC
     Route: 058
     Dates: start: 20100223

REACTIONS (23)
  - MYOPATHY [None]
  - LEUKOCYTOSIS [None]
  - CONDITION AGGRAVATED [None]
  - HYPOTHALAMO-PITUITARY DISORDER [None]
  - ARTHRALGIA [None]
  - CHILLS [None]
  - DENTAL CARIES [None]
  - DYSSTASIA [None]
  - HYPERTENSION [None]
  - BONE PAIN [None]
  - HYPERHIDROSIS [None]
  - EXOSTOSIS [None]
  - POLYNEUROPATHY [None]
  - POLLAKIURIA [None]
  - NEUTROPHILIA [None]
  - CUSHING'S SYNDROME [None]
  - ACNE [None]
  - PYREXIA [None]
  - DISEASE RECURRENCE [None]
  - URTICARIA [None]
  - HYPOCHROMIC ANAEMIA [None]
  - SCHNITZLER'S SYNDROME [None]
  - MONOCLONAL GAMMOPATHY [None]
